FAERS Safety Report 10745297 (Version 1)
Quarter: 2015Q1

REPORT INFORMATION
  Report Type: Spontaneous
  Country: US (occurrence: None)
  Receive Date: 20150126
  Receipt Date: 20150126
  Transmission Date: 20150721
  Serious: Yes (Other)
  Sender: FDA-Public Use
  Company Number: None

PATIENT
  Age: 75 Year
  Sex: Male

DRUGS (1)
  1. METOPROLOL TARTRATE. [Suspect]
     Active Substance: METOPROLOL TARTRATE
     Indication: HYPERTENSION
     Dosage: TAKE 1 TABLET, MORE THAN 2 YEARS
     Route: 048

REACTIONS (2)
  - Drug dose omission [None]
  - Muscular weakness [None]

NARRATIVE: CASE EVENT DATE: 20150123
